FAERS Safety Report 5484846-7 (Version None)
Quarter: 2007Q4

REPORT INFORMATION
  Report Type: 
  Country: None (occurrence: None)
  Receive Date: 20071010
  Receipt Date: 20070926
  Transmission Date: 20080405
  Serious: Yes (Hospitalization, Other)
  Sender: FDA-Public Use
  Company Number: 2007P1000664

PATIENT
  Age: 39 Year
  Sex: Female

DRUGS (1)
  1. NICARDIPINE HCL [Suspect]
     Indication: THREATENED LABOUR
     Dosage: ;IV
     Route: 042

REACTIONS (6)
  - ACUTE PULMONARY OEDEMA [None]
  - CAESAREAN SECTION [None]
  - DRUG EXPOSURE DURING PREGNANCY [None]
  - ELECTROCARDIOGRAM REPOLARISATION ABNORMALITY [None]
  - TROPONIN INCREASED [None]
  - UTERINE ATONY [None]
